FAERS Safety Report 13418505 (Version 7)
Quarter: 2017Q4

REPORT INFORMATION
  Report Type: Report from Study
  Country: US (occurrence: US)
  Receive Date: 20170406
  Receipt Date: 20171109
  Transmission Date: 20180320
  Serious: Yes (Death, Life-Threatening, Hospitalization)
  Sender: FDA-Public Use
  Company Number: US-ACTELION-A-US2016-143409

PATIENT
  Age: 83 Year
  Sex: Female
  Weight: 61.22 kg

DRUGS (22)
  1. RANITINE [Concomitant]
  2. RESTASIS [Concomitant]
     Active Substance: CYCLOSPORINE
     Route: 047
  3. UPTRAVI [Suspect]
     Active Substance: SELEXIPAG
     Indication: PULMONARY HYPERTENSION
     Dosage: 600 MCG, BID
     Route: 048
     Dates: end: 201701
  4. REVATIO [Concomitant]
     Active Substance: SILDENAFIL CITRATE
     Dosage: 80 MG, TID
  5. DILTIAZEM. [Concomitant]
     Active Substance: DILTIAZEM
     Dosage: 60 MG, QD
  6. HYDREA [Concomitant]
     Active Substance: HYDROXYUREA
     Dosage: 1000 MG, QD
  7. UPTRAVI [Suspect]
     Active Substance: SELEXIPAG
     Dosage: 1000 MCG, BID
     Route: 048
     Dates: start: 20160902
  8. TRACLEER [Suspect]
     Active Substance: BOSENTAN
     Indication: PULMONARY HYPERTENSION
     Dosage: 125 MG, BID
     Route: 048
     Dates: start: 20150123, end: 201710
  9. ALDACTONE [Concomitant]
     Active Substance: SPIRONOLACTONE
     Dosage: 50 MG, QD
  10. QUESTRAN [Concomitant]
     Active Substance: CHOLESTYRAMINE
  11. TRIAMCINOLONE [Concomitant]
     Active Substance: TRIAMCINOLONE
     Route: 061
  12. DILTIAZEM. [Concomitant]
     Active Substance: DILTIAZEM
     Dosage: 120 MG, Q12HRS
  13. PERCOCET [Concomitant]
     Active Substance: ACETAMINOPHEN\OXYCODONE HYDROCHLORIDE
     Dosage: UNK, PRN
  14. UPTRAVI [Suspect]
     Active Substance: SELEXIPAG
     Dosage: 200 MCG, BID
     Route: 048
     Dates: start: 20160831
  15. UPTRAVI [Suspect]
     Active Substance: SELEXIPAG
     Dosage: 400 MCG, BID
     Route: 048
  16. ELIQUIS [Suspect]
     Active Substance: APIXABAN
     Indication: PRODUCT USED FOR UNKNOWN INDICATION
     Route: 065
  17. UPTRAVI [Suspect]
     Active Substance: SELEXIPAG
     Dosage: 800 MCG, BID
     Route: 048
  18. ALBUTEROL. [Concomitant]
     Active Substance: ALBUTEROL
  19. LASIX [Concomitant]
     Active Substance: FUROSEMIDE
     Dosage: 40 MG, QD
  20. COLACE [Concomitant]
     Active Substance: DOCUSATE SODIUM
     Dosage: 100 MG, BID
  21. ARIXTRA [Suspect]
     Active Substance: FONDAPARINUX SODIUM
     Indication: PRODUCT USED FOR UNKNOWN INDICATION
     Route: 065
  22. DIGOXIN. [Concomitant]
     Active Substance: DIGOXIN
     Dosage: 0.125 MG, QD

REACTIONS (38)
  - Cardiac arrest [Fatal]
  - Dyspnoea [Recovering/Resolving]
  - Brain natriuretic peptide increased [Recovering/Resolving]
  - Pneumonia [Unknown]
  - Deep vein thrombosis [Unknown]
  - Peripheral swelling [Unknown]
  - Pain in extremity [Recovering/Resolving]
  - Therapy non-responder [Unknown]
  - Neck pain [Recovered/Resolved]
  - Asthenia [Unknown]
  - Atrial fibrillation [Unknown]
  - Musculoskeletal pain [Recovering/Resolving]
  - Facial pain [Unknown]
  - Diarrhoea [Recovered/Resolved]
  - Chest pain [Unknown]
  - Pyuria [Unknown]
  - Dyspnoea exertional [Unknown]
  - Pulmonary embolism [Unknown]
  - Condition aggravated [Recovering/Resolving]
  - Pulseless electrical activity [Not Recovered/Not Resolved]
  - Retroperitoneal haematoma [Recovering/Resolving]
  - Pulmonary congestion [Unknown]
  - Aspartate aminotransferase increased [Unknown]
  - Blood bilirubin increased [Unknown]
  - Cardiac failure congestive [Recovering/Resolving]
  - Pain in jaw [Not Recovered/Not Resolved]
  - Pleural effusion [Unknown]
  - Mastication disorder [Unknown]
  - Headache [Recovered/Resolved]
  - Heart rate increased [Unknown]
  - Troponin increased [Unknown]
  - Liver function test increased [Unknown]
  - Blood alkaline phosphatase increased [Unknown]
  - Pruritus [Unknown]
  - Cough [Unknown]
  - Alanine aminotransferase increased [Unknown]
  - Oedema [Recovering/Resolving]
  - Myalgia [Not Recovered/Not Resolved]

NARRATIVE: CASE EVENT DATE: 20161021
